FAERS Safety Report 14160852 (Version 2)
Quarter: 2018Q2

REPORT INFORMATION
  Report Type: Spontaneous
  Country: US (occurrence: US)
  Receive Date: 20171106
  Receipt Date: 20180611
  Transmission Date: 20180711
  Serious: No
  Sender: FDA-Public Use
  Company Number: US-PFIZER INC-2017475042

PATIENT
  Age: 47 Year
  Sex: Female
  Weight: 89.48 kg

DRUGS (2)
  1. NEOSAR [Concomitant]
     Active Substance: CYCLOPHOSPHAMIDE
  2. DOCETAXEL. [Suspect]
     Active Substance: DOCETAXEL
     Indication: BREAST CANCER
     Dosage: UNK
     Dates: start: 20160606, end: 20160812

REACTIONS (4)
  - Hair injury [Unknown]
  - Alopecia [Recovered/Resolved]
  - Hair colour changes [Unknown]
  - Madarosis [Unknown]

NARRATIVE: CASE EVENT DATE: 201702
